FAERS Safety Report 4932954-9 (Version None)
Quarter: 2006Q1

REPORT INFORMATION
  Report Type: 
  Country: None (occurrence: None)
  Receive Date: 20060301
  Receipt Date: 20060216
  Transmission Date: 20060701
  Serious: Yes (Other)
  Sender: FDA-Public Use
  Company Number: HQWYE905217FEB06

PATIENT
  Sex: Female

DRUGS (1)
  1. EFFEXOR XR [Suspect]
     Dosage: SEE IMAGE
     Route: 048
     Dates: start: 19960101

REACTIONS (2)
  - DRUG WITHDRAWAL SYNDROME [None]
  - SUICIDAL IDEATION [None]
